FAERS Safety Report 9745959 (Version 1)
Quarter: 2013Q4

REPORT INFORMATION
  Report Type: Spontaneous
  Country: US (occurrence: None)
  Receive Date: 20131206
  Receipt Date: 20131206
  Transmission Date: 20140711
  Serious: Yes (Other)
  Sender: FDA-Public Use
  Company Number: None

PATIENT
  Age: 33 Year
  Sex: Female
  Weight: 70.4 kg

DRUGS (1)
  1. VENOFER [Suspect]
     Indication: ANAEMIA
     Route: 042
     Dates: start: 20131126

REACTIONS (2)
  - Feeling abnormal [None]
  - Dyspnoea [None]
